FAERS Safety Report 18823480 (Version 2)
Quarter: 2021Q1

REPORT INFORMATION
  Report Type: Spontaneous
  Country: GB (occurrence: GB)
  Receive Date: 20210202
  Receipt Date: 20210209
  Transmission Date: 20210419
  Serious: Yes (Hospitalization, Other)
  Sender: FDA-Public Use
  Company Number: GB-PFIZER INC-2021069116

PATIENT
  Age: 42 Year
  Sex: Male

DRUGS (4)
  1. METHAMPHETAMINE [METAMFETAMINE] [Interacting]
     Active Substance: METHAMPHETAMINE
     Dosage: UNK
  2. GAMMA?HYDROXYBUTYRATE [Interacting]
     Active Substance: OXYBATE
     Dosage: UNK
  3. KETAMINE HCL [Suspect]
     Active Substance: KETAMINE HYDROCHLORIDE
     Dosage: UNK
  4. TRIUMEQ [Interacting]
     Active Substance: ABACAVIR SULFATE\DOLUTEGRAVIR SODIUM\LAMIVUDINE
     Dosage: UNK

REACTIONS (9)
  - Intentional product misuse [Unknown]
  - Treatment noncompliance [Unknown]
  - Mental disorder [Unknown]
  - Labelled drug-food interaction medication error [Unknown]
  - Suicide attempt [Unknown]
  - Intentional overdose [Unknown]
  - Substance abuse [Unknown]
  - Depressed mood [Unknown]
  - Dependence [Unknown]
